FAERS Safety Report 9937261 (Version 1)
Quarter: 2014Q1

REPORT INFORMATION
  Report Type: Spontaneous
  Country: US (occurrence: US)
  Receive Date: 20140302
  Receipt Date: 20140302
  Transmission Date: 20141002
  Serious: No
  Sender: FDA-Public Use
  Company Number: US-009507513-1403USA000060

PATIENT
  Sex: 0

DRUGS (2)
  1. ZOSTAVAX [Suspect]
     Indication: PROPHYLAXIS
  2. STERILE DILUENT [Suspect]

REACTIONS (3)
  - Wrong technique in drug usage process [Unknown]
  - Product packaging quantity issue [Unknown]
  - No adverse event [Unknown]
